FAERS Safety Report 25327766 (Version 1)
Quarter: 2025Q2

REPORT INFORMATION
  Report Type: Spontaneous
  Country: US (occurrence: US)
  Receive Date: 20250518
  Receipt Date: 20250518
  Transmission Date: 20250716
  Serious: No
  Sender: SANOFI AVENTIS
  Company Number: US-SA-2025SA134922

PATIENT
  Age: 61 Year
  Sex: Female

DRUGS (2)
  1. DUPIXENT [Suspect]
     Active Substance: DUPILUMAB
     Indication: Asthma
     Dosage: 300 MG, QOW
     Route: 058
  2. DOXYCYCLINE [Suspect]
     Active Substance: DOXYCYCLINE

REACTIONS (4)
  - Alopecia [Unknown]
  - Fatigue [Unknown]
  - Arthropod-borne disease [Unknown]
  - Headache [Unknown]
